FAERS Safety Report 23756165 (Version 1)
Quarter: 2024Q2

REPORT INFORMATION
  Report Type: Spontaneous
  Country: US (occurrence: None)
  Receive Date: 20240417
  Receipt Date: 20240417
  Transmission Date: 20240715
  Serious: Yes (Life-Threatening, Hospitalization, Disabling, Other)
  Sender: FDA-Public Use
  Company Number: None

PATIENT
  Age: 29 Year
  Sex: Female
  Weight: 50.4 kg

DRUGS (1)
  1. HALDOL [Suspect]
     Active Substance: HALOPERIDOL
     Indication: Hormone level abnormal
     Route: 048
     Dates: start: 19910406, end: 20150101

REACTIONS (8)
  - Hypothyroidism [None]
  - Adjustment disorder with depressed mood [None]
  - Weight increased [None]
  - Accident at work [None]
  - Drug withdrawal syndrome [None]
  - Amnesia [None]
  - Body height decreased [None]
  - Cerebral atrophy [None]

NARRATIVE: CASE EVENT DATE: 19910406
